FAERS Safety Report 7303434-0 (Version None)
Quarter: 2011Q1

REPORT INFORMATION
  Report Type: 
  Country: None (occurrence: None)
  Receive Date: 20110221
  Receipt Date: 20110208
  Transmission Date: 20110831
  Serious: Yes (Hospitalization, Other)
  Sender: FDA-Public Use
  Company Number: US-ELI_LILLY_AND_COMPANY-US201102002278

PATIENT
  Sex: Female

DRUGS (3)
  1. BENAZEPRIL [Concomitant]
     Dosage: 20 MG, DAILY (1/D)
  2. FORTEO [Suspect]
     Indication: OSTEOPOROSIS
     Dosage: 20 UG, DAILY (1/D)
     Dates: start: 20101230
  3. MULTIVITAMIN [Concomitant]
     Dosage: UNK, DAILY (1/D)

REACTIONS (3)
  - THROMBOSIS [None]
  - PAIN [None]
  - STRESS FRACTURE [None]
